FAERS Safety Report 7096679-9 (Version None)
Quarter: 2010Q4

REPORT INFORMATION
  Report Type: 
  Country: None (occurrence: None)
  Receive Date: 20101111
  Receipt Date: 20101104
  Transmission Date: 20110411
  Serious: Yes (Life-Threatening, Hospitalization, Disabling)
  Sender: FDA-Public Use
  Company Number: RU-BAYER-200935930GPV

PATIENT
  Age: 43 Year
  Sex: Female
  Weight: 74 kg

DRUGS (2)
  1. NEXAVAR [Suspect]
     Indication: RENAL CELL CARCINOMA
     Dosage: TOTAL DAILY DOSE: 800 MG  UNIT DOSE: 200 MG
     Route: 048
     Dates: start: 20081221
  2. PREDNISOLONE [Concomitant]
     Dates: start: 20081230, end: 20090105

REACTIONS (7)
  - ANGIOEDEMA [None]
  - DIARRHOEA [None]
  - FACE OEDEMA [None]
  - GLOSSITIS [None]
  - MADAROSIS [None]
  - METASTATIC RENAL CELL CARCINOMA [None]
  - PALMAR-PLANTAR ERYTHRODYSAESTHESIA SYNDROME [None]
